FAERS Safety Report 4370275-6 (Version None)
Quarter: 2004Q2

REPORT INFORMATION
  Report Type: 
  Country: None (occurrence: None)
  Receive Date: 20040603
  Receipt Date: 20040401
  Transmission Date: 20050107
  Serious: Yes (Hospitalization)
  Sender: FDA-Public Use
  Company Number: US-BRISTOL-MYERS SQUIBB COMPANY-12550935

PATIENT
  Age: 26 Year
  Sex: Female

DRUGS (1)
  1. ABILIFY [Suspect]
     Dosage: INITIATED AT 10 MG/DAY ^SEVERAL MONTHS^ AGO; INCREASED TO 30 MG/DAY 1 WEEK PRIOR TO THE REPORT.

REACTIONS (2)
  - TARDIVE DYSKINESIA [None]
  - TORTICOLLIS [None]
